FAERS Safety Report 6084129-0 (Version None)
Quarter: 2009Q1

REPORT INFORMATION
  Report Type: 
  Country: None (occurrence: None)
  Receive Date: 20090219
  Receipt Date: 20090212
  Transmission Date: 20090719
  Serious: Yes (Hospitalization)
  Sender: FDA-Public Use
  Company Number: US-ASTRAZENECA-2008UW27366

PATIENT
  Age: 62 Year
  Sex: Female
  Weight: 81.6 kg

DRUGS (10)
  1. SYMBICORT [Suspect]
     Dosage: 2 PUFF AM; 2 PUFF PM
     Route: 055
     Dates: start: 20080901, end: 20081208
  2. SYMBICORT [Suspect]
     Dosage: 2 PUFF AM; 2 PUFF PM
     Route: 055
  3. SYNTHROID [Concomitant]
  4. PROCARDIA [Concomitant]
  5. NEXIUM [Concomitant]
  6. AMBIEN [Concomitant]
  7. NASONEX [Concomitant]
     Route: 045
  8. ALBUTEROL [Concomitant]
  9. CARAFATE [Concomitant]
  10. CRESTOR [Concomitant]
     Indication: BLOOD CHOLESTEROL INCREASED
     Route: 048
     Dates: start: 20080501

REACTIONS (1)
  - ASTHMA [None]
